FAERS Safety Report 25225544 (Version 1)
Quarter: 2025Q2

REPORT INFORMATION
  Report Type: Spontaneous
  Country: US (occurrence: US)
  Receive Date: 20250422
  Receipt Date: 20250422
  Transmission Date: 20250716
  Serious: Yes (Other)
  Sender: CATALYST PHARMA
  Company Number: US-CATALYST PHARMACEUTICALS-US-CATA-25-00417

PATIENT
  Sex: Male
  Weight: 33.887 kg

DRUGS (5)
  1. AGAMREE [Suspect]
     Active Substance: VAMOROLONE
     Indication: Duchenne muscular dystrophy
     Dosage: 5.2 ML ONCE DAILY
     Route: 048
     Dates: start: 20250117, end: 20250325
  2. AGAMREE [Suspect]
     Active Substance: VAMOROLONE
     Dosage: 5.1 ML ONCE DAILY
     Route: 048
     Dates: start: 20250325
  3. CVS GUMMY MULTIVITAMIN [Concomitant]
     Indication: Hypovitaminosis
     Dosage: TWO GUMMIES DAILY
     Route: 048
  4. MIRALAX [Concomitant]
     Active Substance: POLYETHYLENE GLYCOL 3350
     Indication: Constipation
     Dosage: 17 GRAMS PER SCOOP 1 SCOOP DAILY
     Route: 048
  5. VITAMIN D3 [Concomitant]
     Active Substance: CHOLECALCIFEROL
     Indication: Prophylaxis
     Dosage: 1000 UNITS DAILY
     Route: 048

REACTIONS (5)
  - Fall [Unknown]
  - Spinal fracture [Unknown]
  - Weight decreased [Unknown]
  - Asthenia [Unknown]
  - Abdominal pain upper [Unknown]

NARRATIVE: CASE EVENT DATE: 20250101
